FAERS Safety Report 19211916 (Version 1)
Quarter: 2021Q2

REPORT INFORMATION
  Report Type: Spontaneous
  Country: US (occurrence: US)
  Receive Date: 20210504
  Receipt Date: 20210504
  Transmission Date: 20210717
  Serious: Yes (Hospitalization)
  Sender: FDA-Public Use
  Company Number: None

PATIENT
  Sex: Female
  Weight: 83 kg

DRUGS (1)
  1. TEMOZOLOMIDE. [Suspect]
     Active Substance: TEMOZOLOMIDE

REACTIONS (13)
  - Lymphadenopathy [None]
  - Pyrexia [None]
  - Throat irritation [None]
  - Dyspnoea [None]
  - Dysphagia [None]
  - Swelling face [None]
  - Thrombocytopenia [None]
  - Bacteraemia [None]
  - Neurodermatitis [None]
  - Eczema [None]
  - Rash pruritic [None]
  - Drug reaction with eosinophilia and systemic symptoms [None]
  - Dermatitis exfoliative generalised [None]

NARRATIVE: CASE EVENT DATE: 20210301
